FAERS Safety Report 6041583-8 (Version None)
Quarter: 2009Q1

REPORT INFORMATION
  Report Type: 
  Country: None (occurrence: None)
  Receive Date: 20090116
  Receipt Date: 20090115
  Transmission Date: 20090719
  Serious: Yes (Death)
  Sender: FDA-Public Use
  Company Number: A0763630A

PATIENT
  Age: 50 Year
  Sex: Female
  Weight: 63 kg

DRUGS (2)
  1. FLOLAN [Suspect]
     Dosage: .5MG UNKNOWN
     Route: 065
     Dates: start: 20080101, end: 20090109
  2. FLOLAN [Suspect]
     Dosage: 1.5MG UNKNOWN
     Route: 065

REACTIONS (1)
  - DEATH [None]
